FAERS Safety Report 9820537 (Version 2)
Quarter: 2019Q1

REPORT INFORMATION
  Report Type: Spontaneous
  Country: US (occurrence: US)
  Receive Date: 20140116
  Receipt Date: 20190208
  Transmission Date: 20190418
  Serious: Yes (Death, Other)
  Sender: FDA-Public Use
  Company Number: US-PFIZER INC-2014011319

PATIENT
  Age: 81 Year
  Sex: Female
  Weight: 88.44 kg

DRUGS (1)
  1. TIKOSYN [Suspect]
     Active Substance: DOFETILIDE
     Indication: ATRIAL FIBRILLATION
     Dosage: 125 MG, 2X/DAY
     Route: 048
     Dates: start: 2011

REACTIONS (2)
  - Death [Fatal]
  - Breast mass [Unknown]

NARRATIVE: CASE EVENT DATE: 201310
